FAERS Safety Report 8421380 (Version 2)
Quarter: 2012Q4

REPORT INFORMATION
  Report Type: 
  Country: FR (occurrence: FR)
  Receive Date: 20120222
  Receipt Date: 20120912
  Transmission Date: 20130627
  Serious: Yes (Other)
  Sender: FDA-Public Use
  Company Number: FR-PFIZER INC-2011055284

PATIENT
  Age: 53 Year
  Sex: Female
  Weight: 58 kg

DRUGS (3)
  1. SALAZOPYRINE [Suspect]
     Indication: ANKYLOSING SPONDYLITIS
     Dosage: 3 DF, 2x/day
  2. SALAZOPYRINE [Suspect]
     Dosage: 1 DF in the morning, 1 DF at lunchtime, 4 DF in the evening
     Dates: end: 20120210
  3. VOLTARENE [Suspect]
     Indication: ANKYLOSING SPONDYLITIS
     Dosage: 1 DF, 1x/day

REACTIONS (11)
  - Transaminases increased [Recovered/Resolved]
  - Tuberculosis [Recovered/Resolved]
  - Vertigo [Recovered/Resolved]
  - Sedation [Recovered/Resolved]
  - Disturbance in attention [Recovered/Resolved]
  - Eye irritation [Recovered/Resolved]
  - Ocular hyperaemia [Recovered/Resolved]
  - Photophobia [Recovered/Resolved]
  - Skin disorder [Recovered/Resolved]
  - Gastric disorder [Recovered/Resolved]
  - Gamma-glutamyltransferase increased [Recovered/Resolved]
